FAERS Safety Report 9198446 (Version 1)
Quarter: 2013Q1

REPORT INFORMATION
  Report Type: Report from Study
  Country: US (occurrence: US)
  Receive Date: 20130329
  Receipt Date: 20130329
  Transmission Date: 20140127
  Serious: Yes (Hospitalization)
  Sender: FDA-Public Use
  Company Number: US-JNJFOC-20130314855

PATIENT
  Age: 14 Year
  Sex: Female
  Weight: 44.7 kg

DRUGS (15)
  1. REMICADE [Suspect]
     Indication: INFLAMMATORY BOWEL DISEASE
     Route: 042
  2. REMICADE [Suspect]
     Indication: INFLAMMATORY BOWEL DISEASE
     Route: 042
     Dates: start: 20081004
  3. CIMZIA [Concomitant]
     Route: 065
  4. HUMIRA [Concomitant]
     Route: 065
  5. OMEPRAZOLE [Concomitant]
     Route: 065
  6. PEPTAMEN [Concomitant]
     Route: 065
  7. CHOLECALCIFEROL [Concomitant]
     Route: 065
  8. PREDNISONE [Concomitant]
     Route: 065
  9. ANTIBIOTICS [Concomitant]
     Indication: INFLAMMATORY BOWEL DISEASE
     Route: 065
  10. PERIACTIN [Concomitant]
     Route: 065
  11. NUBAIN [Concomitant]
     Route: 065
  12. TYLENOL [Concomitant]
     Route: 065
  13. ZOSYN [Concomitant]
     Route: 065
  14. PROTONIX [Concomitant]
     Route: 065
  15. KEFLEX [Concomitant]
     Route: 065

REACTIONS (2)
  - Enterocutaneous fistula [Recovered/Resolved]
  - Influenza [Recovered/Resolved]
